FAERS Safety Report 23503118 (Version 1)
Quarter: 2024Q1

REPORT INFORMATION
  Report Type: Spontaneous
  Country: US (occurrence: US)
  Receive Date: 20240208
  Receipt Date: 20240208
  Transmission Date: 20240410
  Serious: No
  Sender: FDA-Public Use
  Company Number: US-INTRA-CELLULAR THERAPIES, INC.-2023ICT01723

PATIENT
  Sex: Male
  Weight: 113.38 kg

DRUGS (2)
  1. CAPLYTA [Suspect]
     Active Substance: LUMATEPERONE
     Dosage: 42 MG, 1X/DAY
     Route: 048
     Dates: start: 20220712
  2. LAMOTRIGINE [Concomitant]
     Active Substance: LAMOTRIGINE
     Dosage: 200 MG, AT BEDTIME

REACTIONS (4)
  - Migraine [Recovered/Resolved]
  - Anger [Unknown]
  - Mood swings [Unknown]
  - Treatment noncompliance [Recovered/Resolved]
